FAERS Safety Report 4465029-6 (Version None)
Quarter: 2004Q4

REPORT INFORMATION
  Report Type: 
  Country: None (occurrence: None)
  Receive Date: 20041004
  Receipt Date: 20040922
  Transmission Date: 20050328
  Serious: Yes (Hospitalization)
  Sender: FDA-Public Use
  Company Number: NO-ROCHE-381165

PATIENT
  Sex: Male

DRUGS (3)
  1. ROCERON [Suspect]
     Route: 058
     Dates: start: 19981201, end: 19990315
  2. ROCERON [Suspect]
     Route: 058
     Dates: start: 19990315, end: 19990615
  3. REBETOL [Concomitant]
     Route: 048
     Dates: start: 19981215, end: 19990615

REACTIONS (6)
  - ASTHENIA [None]
  - COUGH [None]
  - DRUG INEFFECTIVE [None]
  - DYSPNOEA [None]
  - FATIGUE [None]
  - SARCOIDOSIS [None]
